FAERS Safety Report 6658098-6 (Version None)
Quarter: 2010Q1

REPORT INFORMATION
  Report Type: 
  Country: None (occurrence: None)
  Receive Date: 20100330
  Receipt Date: 20100324
  Transmission Date: 20100710
  Serious: Yes (Death)
  Sender: FDA-Public Use
  Company Number: TR-ELI_LILLY_AND_COMPANY-TR200910006112

PATIENT
  Age: 35 Year
  Sex: Female

DRUGS (6)
  1. HUMULIN N [Suspect]
     Indication: GESTATIONAL DIABETES
     Dosage: 24 IU, DAILY (1/D)
     Route: 058
     Dates: start: 20090701, end: 20100208
  2. HUMULIN R [Suspect]
     Indication: GESTATIONAL DIABETES
     Dosage: 8 IU, EACH MORNING
     Route: 058
     Dates: start: 20090701
  3. HUMULIN R [Suspect]
     Dosage: 8 IU, OTHER
     Route: 058
     Dates: start: 20090701
  4. HUMULIN R [Suspect]
     Dosage: 8 IU, EACH EVENING
     Route: 058
     Dates: start: 20090701
  5. LEVOTIRON [Concomitant]
     Indication: GOITRE
     Dosage: 1.5 D/F, EACH MORNING
     Route: 048
     Dates: start: 20050101
  6. LEVOTIRON [Concomitant]
     Dosage: 1.5 D/F, EACH EVENING
     Route: 048
     Dates: start: 20050101

REACTIONS (2)
  - DEATH [None]
  - DRUG EXPOSURE DURING PREGNANCY [None]
